FAERS Safety Report 7085800-4 (Version None)
Quarter: 2010Q4

REPORT INFORMATION
  Report Type: 
  Country: None (occurrence: None)
  Receive Date: 20101105
  Receipt Date: 20101029
  Transmission Date: 20110411
  Serious: Yes (Death, Life-Threatening, Other)
  Sender: FDA-Public Use
  Company Number: JP-CELGENEUS-087-21880-10091398

PATIENT
  Sex: Female

DRUGS (36)
  1. REVLIMID [Suspect]
     Indication: MYELODYSPLASTIC SYNDROME
     Route: 048
     Dates: start: 20100903, end: 20100907
  2. MYSLEE [Concomitant]
     Route: 065
     Dates: start: 20100817, end: 20100908
  3. PREDNISOLONE [Concomitant]
     Route: 048
     Dates: start: 20100826, end: 20100902
  4. PREDNISOLONE [Concomitant]
     Indication: MULTIPLE MYELOMA
     Route: 065
     Dates: start: 20100903, end: 20100905
  5. PREDNISOLONE [Concomitant]
     Route: 065
     Dates: start: 20100906, end: 20100909
  6. PREDNISOLONE [Concomitant]
     Route: 065
     Dates: start: 20100910, end: 20100910
  7. PREDNISOLONE [Concomitant]
     Route: 065
     Dates: start: 20100911, end: 20100916
  8. BONALON [Concomitant]
     Indication: MULTIPLE MYELOMA
     Route: 065
     Dates: start: 20100826, end: 20100915
  9. PARIET [Concomitant]
     Indication: PROPHYLAXIS
     Route: 065
     Dates: end: 20100914
  10. HUSTAZOL [Concomitant]
     Route: 065
     Dates: start: 20100903, end: 20100912
  11. URSO 250 [Concomitant]
     Route: 065
     Dates: end: 20100915
  12. MINOFIT [Concomitant]
     Route: 051
     Dates: end: 20100913
  13. TRANEXAMIC ACID [Concomitant]
     Route: 041
     Dates: start: 20100915, end: 20100915
  14. TRANEXAMIC ACID [Concomitant]
     Route: 041
     Dates: start: 20100916, end: 20100916
  15. SOLU-MEDROL [Concomitant]
     Route: 041
     Dates: start: 20100915, end: 20100915
  16. SOLU-MEDROL [Concomitant]
     Route: 041
     Dates: start: 20100916, end: 20100916
  17. ROCEPHIN [Concomitant]
     Route: 041
     Dates: start: 20100915, end: 20100916
  18. MIDAZOLAM HCL [Concomitant]
     Route: 041
     Dates: start: 20100915, end: 20100915
  19. MIDAZOLAM HCL [Concomitant]
     Route: 041
     Dates: start: 20100915, end: 20100915
  20. MIDAZOLAM HCL [Concomitant]
     Route: 041
     Dates: start: 20100917, end: 20100917
  21. GASTER [Concomitant]
     Route: 041
     Dates: start: 20100916, end: 20100917
  22. DOBUTREX [Concomitant]
     Route: 041
     Dates: start: 20100916, end: 20100916
  23. ALBUMIN (HUMAN) [Concomitant]
     Dosage: 12.5G/50ML 2V
     Route: 041
     Dates: start: 20100916, end: 20100916
  24. MIOBLOCK [Concomitant]
     Route: 041
     Dates: start: 20100916, end: 20100916
  25. LASIX [Concomitant]
     Route: 041
     Dates: start: 20100916, end: 20100916
  26. LASIX [Concomitant]
     Route: 051
     Dates: start: 20100916, end: 20100916
  27. LASIX [Concomitant]
     Route: 065
     Dates: start: 20100917, end: 20100917
  28. LASIX [Concomitant]
     Route: 051
     Dates: start: 20100917, end: 20100917
  29. ELASPOL [Concomitant]
     Route: 041
     Dates: start: 20100916, end: 20100916
  30. CATABON HI [Concomitant]
     Route: 041
     Dates: start: 20100916, end: 20100917
  31. DOPMIN-K [Concomitant]
     Route: 041
     Dates: start: 20100916, end: 20100916
  32. GLUCOSE [Concomitant]
     Route: 065
     Dates: start: 20100916, end: 20100916
  33. GLUCOSE [Concomitant]
     Route: 065
     Dates: start: 20100916, end: 20100916
  34. NOVOLIN R [Concomitant]
     Dosage: 100IU/ML, 8IU
     Route: 065
     Dates: start: 20100916, end: 20100916
  35. MEROPEN [Concomitant]
     Route: 065
     Dates: start: 20100917, end: 20100917
  36. ADRENALINE [Concomitant]
     Dosage: 6 SYRINGES
     Route: 041
     Dates: start: 20100917, end: 20100917

REACTIONS (3)
  - MULTI-ORGAN FAILURE [None]
  - PLATELET COUNT DECREASED [None]
  - PNEUMONIA [None]
